FAERS Safety Report 16776650 (Version 1)
Quarter: 2019Q3

REPORT INFORMATION
  Report Type: Spontaneous
  Country: US (occurrence: US)
  Receive Date: 20190716
  Receipt Date: 20190716
  Transmission Date: 20191005
  Serious: No
  Sender: FDA-Public Use
  Company Number: None

PATIENT
  Age: 76 Year
  Sex: Male

DRUGS (2)
  1. ABIRATERONE 250MG TAB [Suspect]
     Active Substance: ABIRATERONE
     Dates: start: 201906
  2. PREDNISONE. [Concomitant]
     Active Substance: PREDNISONE

REACTIONS (3)
  - Fatigue [None]
  - Night sweats [None]
  - Poor quality sleep [None]

NARRATIVE: CASE EVENT DATE: 20190716
